FAERS Safety Report 8791873 (Version 4)
Quarter: 2012Q4

REPORT INFORMATION
  Report Type: Report from Study
  Country: FR (occurrence: FR)
  Receive Date: 20120918
  Receipt Date: 20121221
  Transmission Date: 20130627
  Serious: Yes (Other)
  Sender: FDA-Public Use
  Company Number: PHHO2012FR013285

PATIENT
  Sex: Male
  Weight: 72 kg

DRUGS (2)
  1. AMN107 [Suspect]
     Indication: CHRONIC MYELOID LEUKAEMIA
     Dosage: 300 mg, BID
     Route: 048
     Dates: start: 20110909, end: 20120906
  2. PEGINTERFERON [Suspect]
     Indication: CHRONIC MYELOID LEUKAEMIA
     Dosage: 45 ug, weekly
     Dates: start: 20120812, end: 20120906

REACTIONS (1)
  - Coronary artery stenosis [Recovered/Resolved with Sequelae]
